FAERS Safety Report 20848315 (Version 1)
Quarter: 2022Q2

REPORT INFORMATION
  Report Type: Spontaneous
  Country: US (occurrence: None)
  Receive Date: 20220518
  Receipt Date: 20220518
  Transmission Date: 20220720
  Serious: No
  Sender: FDA-Public Use
  Company Number: None

PATIENT
  Age: 17 Year
  Sex: Female

DRUGS (1)
  1. VANCOMYCIN HYDROCHLORIDE [Suspect]
     Active Substance: VANCOMYCIN HYDROCHLORIDE
     Indication: Skin infection
     Dosage: 1 GM Q24H IV?THERAPY END: 06102022
     Route: 042
     Dates: start: 20220514

REACTIONS (4)
  - Flushing [None]
  - Diarrhoea [None]
  - Abdominal pain [None]
  - Vancomycin infusion reaction [None]

NARRATIVE: CASE EVENT DATE: 20220514
